FAERS Safety Report 4446554-0 (Version None)
Quarter: 2004Q3

REPORT INFORMATION
  Report Type: 
  Country: None (occurrence: None)
  Receive Date: 20040902
  Receipt Date: 20040812
  Transmission Date: 20050211
  Serious: Yes (Hospitalization)
  Sender: FDA-Public Use
  Company Number: JP_040804040

PATIENT
  Age: 82 Year
  Sex: Female

DRUGS (5)
  1. EVISTA [Suspect]
     Indication: OSTEOPOROSIS
     Dosage: 60 MG/1 DAY
     Dates: start: 20040715, end: 20040725
  2. PARIET (RABEPRAZOLE SODIUM) [Concomitant]
  3. MOBIC [Concomitant]
  4. MACTASE S [Concomitant]
  5. AMEL S [Concomitant]

REACTIONS (4)
  - DEPRESSED LEVEL OF CONSCIOUSNESS [None]
  - DIARRHOEA [None]
  - HEAT STROKE [None]
  - VOMITING [None]
